FAERS Safety Report 9953570 (Version 2)
Quarter: 2014Q1

REPORT INFORMATION
  Report Type: Spontaneous
  Country: BE (occurrence: BE)
  Receive Date: 20140304
  Receipt Date: 20140311
  Transmission Date: 20141002
  Serious: Yes (Death, Other)
  Sender: FDA-Public Use
  Company Number: BE-BRISTOL-MYERS SQUIBB COMPANY-20309175

PATIENT
  Age: 80 Year
  Sex: Female
  Weight: 67 kg

DRUGS (9)
  1. IPILIMUMAB [Suspect]
     Dates: start: 20131211, end: 20131231
  2. BURINEX [Concomitant]
     Dates: start: 201310
  3. TRINIPATCH [Concomitant]
  4. THYROXINE [Concomitant]
     Dosage: 1DF=75 UNITS NOS
  5. PANTOMED [Concomitant]
     Dosage: 1DF=20 UNITS NOS
  6. INDERAL RETARD [Concomitant]
     Dosage: 1DF=80 UNITS NOS
  7. LORAZEPAM [Concomitant]
     Dosage: 1DF=2.5 UNITS NOS
  8. LORMETAZEPAM [Concomitant]
  9. CLEXANE [Concomitant]
     Dosage: 1DF=40 UNITS NOS

REACTIONS (2)
  - Renal failure [Fatal]
  - Malignant neoplasm progression [Unknown]
